FAERS Safety Report 8267913-4 (Version None)
Quarter: 2012Q2

REPORT INFORMATION
  Report Type: 
  Country: None (occurrence: None)
  Receive Date: 20120404
  Receipt Date: 20120321
  Transmission Date: 20120825
  Serious: Yes (Hospitalization, Other)
  Sender: FDA-Public Use
  Company Number: 2012MA003971

PATIENT
  Age: 70 Year
  Sex: Female

DRUGS (4)
  1. METFORMIN HYDROCHLORIDE [Suspect]
     Indication: TYPE 2 DIABETES MELLITUS
     Dosage: 1 G;BID;PO
     Route: 048
     Dates: start: 20110801
  2. SIMVASTATIN [Concomitant]
  3. ACETYLSALICYLIC ACID SRT [Concomitant]
  4. HUMAN INSULATARD [Concomitant]

REACTIONS (8)
  - NAUSEA [None]
  - CARDIOVASCULAR DISORDER [None]
  - MALAISE [None]
  - RENAL FAILURE ACUTE [None]
  - VOMITING [None]
  - LACTIC ACIDOSIS [None]
  - HYPOGLYCAEMIA [None]
  - METABOLIC ACIDOSIS [None]
